FAERS Safety Report 6422195-0 (Version None)
Quarter: 2009Q4

REPORT INFORMATION
  Report Type: 
  Country: None (occurrence: None)
  Receive Date: 20091030
  Receipt Date: 20091023
  Transmission Date: 20100525
  Serious: Yes (Hospitalization)
  Sender: FDA-Public Use
  Company Number: PHHY2009ES45899

PATIENT
  Age: 25 Year
  Sex: Female

DRUGS (3)
  1. TRILEPTAL [Suspect]
     Indication: EPILEPSY
     Dosage: 1000 MG DAILY
     Route: 048
     Dates: start: 20090202
  2. TRILEPTAL [Interacting]
     Dosage: DOSE DECREASED
     Route: 048
  3. DEPAKENE [Interacting]
     Indication: EPILEPSY
     Dosage: 1200 MG DAILY
     Route: 048
     Dates: start: 20090202, end: 20090801

REACTIONS (4)
  - BLOOD ANTIDIURETIC HORMONE DECREASED [None]
  - DRUG INTERACTION [None]
  - MALAISE [None]
  - VOMITING [None]
